FAERS Safety Report 11804772 (Version 1)
Quarter: 2015Q4

REPORT INFORMATION
  Report Type: Spontaneous
  Country: DE (occurrence: DE)
  Receive Date: 20151205
  Receipt Date: 20151205
  Transmission Date: 20160305
  Serious: Yes (Hospitalization)
  Sender: FDA-Public Use
  Company Number: DE-SUN PHARMACEUTICAL INDUSTRIES LTD-2015RR-107190

PATIENT

DRUGS (14)
  1. MIRTAZAPINE. [Suspect]
     Active Substance: MIRTAZAPINE
     Indication: PRODUCT USED FOR UNKNOWN INDICATION
     Dosage: 15 MG, DAILY
     Route: 048
     Dates: start: 20141106, end: 20141110
  2. MIRTAZAPINE. [Suspect]
     Active Substance: MIRTAZAPINE
     Indication: PRODUCT USED FOR UNKNOWN INDICATION
     Dosage: 30 MG, DAILY
     Route: 048
     Dates: start: 20141111, end: 20141120
  3. CARBAMAZEPIN [Concomitant]
     Active Substance: CARBAMAZEPINE
     Dosage: 400 MG, DAILY
     Route: 048
     Dates: start: 20150113
  4. MIRTAZAPINE. [Suspect]
     Active Substance: MIRTAZAPINE
     Indication: PRODUCT USED FOR UNKNOWN INDICATION
     Dosage: 30 MG, DAILY
     Route: 048
     Dates: start: 20140202, end: 20140210
  5. MIRTAZAPINE. [Suspect]
     Active Substance: MIRTAZAPINE
     Indication: PRODUCT USED FOR UNKNOWN INDICATION
     Dosage: 15 MG, DAILY
     Route: 048
     Dates: start: 20140217, end: 20140226
  6. LAMICTAL [Concomitant]
     Active Substance: LAMOTRIGINE
     Indication: PRODUCT USED FOR UNKNOWN INDICATION
     Dosage: 25 MG, DAILY
     Route: 048
     Dates: start: 20150113, end: 20150121
  7. CARBAMAZEPIN [Concomitant]
     Active Substance: CARBAMAZEPINE
     Dosage: 400 MG, DAILY
     Route: 048
     Dates: start: 20141213, end: 20150109
  8. CARBAMAZEPIN [Concomitant]
     Active Substance: CARBAMAZEPINE
     Dosage: 300 MG, DAILY
     Route: 048
     Dates: start: 20150114
  9. MIRTAZAPINE. [Concomitant]
     Active Substance: MIRTAZAPINE
     Indication: PRODUCT USED FOR UNKNOWN INDICATION
     Dosage: 30 MG, DAILY
     Route: 048
     Dates: start: 20140227
  10. MIRTAZAPINE. [Suspect]
     Active Substance: MIRTAZAPINE
     Indication: PRODUCT USED FOR UNKNOWN INDICATION
     Dosage: 15 MG, DAILY
     Route: 048
     Dates: start: 20140130, end: 20140201
  11. CARBAMAZEPIN [Concomitant]
     Active Substance: CARBAMAZEPINE
     Indication: PRODUCT USED FOR UNKNOWN INDICATION
     Dosage: 200 MG, DAILY
     Route: 048
     Dates: start: 20141209, end: 20141212
  12. CARBAMAZEPIN [Concomitant]
     Active Substance: CARBAMAZEPINE
     Indication: PRODUCT USED FOR UNKNOWN INDICATION
     Dosage: 500 MG, DAILY
     Route: 048
     Dates: start: 20150110, end: 20150112
  13. PROMETHAZINE [Concomitant]
     Active Substance: PROMETHAZINE\PROMETHAZINE HYDROCHLORIDE
     Indication: PRODUCT USED FOR UNKNOWN INDICATION
     Dosage: 75 MG, DAILY
     Route: 048
     Dates: start: 20140114, end: 20140121
  14. CARBAMAZEPIN [Concomitant]
     Active Substance: CARBAMAZEPINE
     Indication: PRODUCT USED FOR UNKNOWN INDICATION
     Dosage: 200 MG, DAILY
     Route: 048
     Dates: start: 20150115, end: 20150120

REACTIONS (1)
  - Blood creatine phosphokinase increased [Recovered/Resolved]

NARRATIVE: CASE EVENT DATE: 20140121
